FAERS Safety Report 10085217 (Version 1)
Quarter: 2014Q2

REPORT INFORMATION
  Report Type: Spontaneous
  Country: US (occurrence: US)
  Receive Date: 20140417
  Receipt Date: 20140417
  Transmission Date: 20141212
  Serious: Yes (Life-Threatening, Hospitalization, Other)
  Sender: FDA-Public Use
  Company Number: PHHY2014US045403

PATIENT
  Sex: Male

DRUGS (16)
  1. BACLOFEN INTRATHECAL [Suspect]
     Indication: SPINAL COLUMN STENOSIS
     Dosage: 555.9 UG, DAY
     Route: 037
  2. BACLOFEN INTRATHECAL [Suspect]
     Dosage: 506.1 UG, DAY
     Route: 037
  3. BACLOFEN INTRATHECAL [Suspect]
     Dosage: RESUME AT HALF THE PREVIOUS RATE
     Route: 037
  4. LISINOPRIL TABLETS [Suspect]
     Dosage: 80 MG, AT BEDTIME
     Route: 048
  5. CLONAZEPAM TABLETS, USP [Suspect]
     Dosage: 1 MG, TID (AS NEEDED)
     Route: 048
  6. HYDROMORPHONE [Suspect]
     Dosage: 7 MG/DL
     Route: 037
  7. HYDROMORPHONE [Suspect]
     Dosage: 7 MG/DL
     Route: 037
  8. HYDROMORPHONE [Suspect]
     Dosage: RESUME AT HALF THE PREVIOUS RATE
     Route: 037
  9. COLACE [Suspect]
     Dosage: 100 MG, BID
     Route: 048
  10. ERGOCALCIFEROL [Suspect]
     Dosage: 1.25 MG, VERY WEEK
  11. DILAUDID [Suspect]
     Indication: PAIN
     Dosage: 1.389 MG/DAY
     Route: 037
  12. DILAUDID [Suspect]
     Dosage: 17715 MG, DAY
     Route: 037
  13. DILAUDID [Suspect]
     Dosage: RESUME AT HALF THE PREVIOUS RATE
  14. HYDROQUINONE [Suspect]
     Dosage: UNK UKN, BID
     Route: 061
  15. SEBULEX [Suspect]
     Dosage: UNK UKN, UNK
  16. SENNA [Suspect]
     Dosage: 2 DF, BID
     Route: 048

REACTIONS (17)
  - Cardio-respiratory arrest [Unknown]
  - Blood creatinine increased [Unknown]
  - Fall [Unknown]
  - Hypoventilation [Unknown]
  - Hypoxia [Unknown]
  - Abasia [Unknown]
  - Drug tolerance [Unknown]
  - Supraventricular extrasystoles [Unknown]
  - Pulseless electrical activity [Unknown]
  - Renal failure acute [Unknown]
  - Laboratory test abnormal [Unknown]
  - Muscular weakness [Unknown]
  - Mental status changes [Recovered/Resolved]
  - Somnolence [Unknown]
  - Disorientation [Unknown]
  - Back pain [Unknown]
  - Overdose [Unknown]
